FAERS Safety Report 5751643-4 (Version None)
Quarter: 2008Q2

REPORT INFORMATION
  Report Type: 
  Country: None (occurrence: None)
  Receive Date: 20080528
  Receipt Date: 20080521
  Transmission Date: 20081010
  Serious: Yes (Death)
  Sender: FDA-Public Use
  Company Number: PHHO2008ES06501

PATIENT
  Sex: Male

DRUGS (7)
  1. CYCLOSPORINE [Suspect]
     Indication: RENAL TRANSPLANT
     Dosage: 100 MG DAILY
     Route: 048
     Dates: start: 20070222, end: 20080115
  2. PREDNISOLONE [Concomitant]
     Indication: RENAL TRANSPLANT
     Dosage: 5MG DAILY
     Route: 048
     Dates: start: 20070224
  3. CERTICAN [Concomitant]
     Indication: RENAL TRANSPLANT
     Dosage: 2.5 MG DAILY
     Route: 048
     Dates: start: 20080115
  4. MYCOPHENOLATE MOFETIL [Concomitant]
     Indication: RENAL TRANSPLANT
     Dosage: 1.25 G DAILY
     Route: 048
     Dates: start: 20070222
  5. OMEPRAZOLE [Concomitant]
  6. CARDURA [Concomitant]
  7. MANIDIPINE [Concomitant]

REACTIONS (1)
  - KAPOSI'S SARCOMA [None]
